FAERS Safety Report 13305134 (Version 1)
Quarter: 2017Q1

REPORT INFORMATION
  Report Type: Spontaneous
  Country: US (occurrence: US)
  Receive Date: 20170307
  Receipt Date: 20170307
  Transmission Date: 20170428
  Serious: Yes (Other)
  Sender: FDA-Public Use
  Company Number: None

PATIENT
  Age: 65 Year
  Sex: Male

DRUGS (1)
  1. AMPICILLIN 2GM POWDER VIAL FRESENIUS KABI USA [Suspect]
     Active Substance: AMPICILLIN
     Indication: ENCEPHALITIS
     Dosage: FREQUENCY - CONTINUOUS
     Route: 042
     Dates: start: 20170303, end: 20170304

REACTIONS (2)
  - Unevaluable event [None]
  - Rash [None]

NARRATIVE: CASE EVENT DATE: 20170304
